FAERS Safety Report 9330197 (Version 1)
Quarter: 2013Q2

REPORT INFORMATION
  Report Type: Spontaneous
  Country: US (occurrence: US)
  Receive Date: 20130604
  Receipt Date: 20130604
  Transmission Date: 20140414
  Serious: No
  Sender: FDA-Public Use
  Company Number: US-ROCHE-1228788

PATIENT
  Sex: Female
  Weight: 101.2 kg

DRUGS (15)
  1. XOLAIR [Suspect]
     Indication: ASTHMA
     Route: 058
     Dates: start: 20130425
  2. FLOVENT HFA [Concomitant]
     Route: 065
  3. VITAMIN D2 [Concomitant]
     Route: 065
  4. ULTRAM [Concomitant]
     Indication: PAIN
     Route: 065
  5. FLECTOR (UNITED STATES) [Concomitant]
     Route: 061
  6. PREVACID [Concomitant]
     Route: 048
  7. OCEAN NASAL SPRAY [Concomitant]
     Route: 045
  8. XOPENEX HFA [Concomitant]
     Route: 048
  9. FLONASE [Concomitant]
     Route: 045
  10. OMEGA 3 FATTY ACIDS [Concomitant]
  11. ZYRTEC [Concomitant]
     Route: 048
  12. SINGULAIR [Concomitant]
     Route: 048
  13. FIORINAL (UNITED STATES) [Concomitant]
     Dosage: DOSE: 50-325-40 MG
     Route: 048
  14. MUCINEX D [Concomitant]
     Dosage: DOSE: 60-600 MG
     Route: 048
  15. TOPAMAX [Concomitant]
     Route: 048

REACTIONS (3)
  - Paraesthesia oral [Recovered/Resolved]
  - Gastroenteritis viral [Unknown]
  - Dyspnoea [Unknown]
